FAERS Safety Report 7781531-3 (Version None)
Quarter: 2011Q3

REPORT INFORMATION
  Report Type: 
  Country: None (occurrence: None)
  Receive Date: 20110927
  Receipt Date: 20110921
  Transmission Date: 20111222
  Serious: No
  Sender: FDA-Public Use
  Company Number: US-B.I. PHARMACEUTICALS,INC./RIDGEFIELD-2011-BP-20243BP

PATIENT
  Sex: Female
  Weight: 84.82 kg

DRUGS (7)
  1. BONIVA [Concomitant]
     Dosage: 150 MG
  2. CLONAZEPAM [Concomitant]
     Indication: INSOMNIA
     Dosage: 0.5 MG
  3. MIRAPEX [Suspect]
     Indication: RESTLESS LEGS SYNDROME
     Dosage: 1-3.25 MG
     Dates: start: 20081101, end: 20110424
  4. SINGULAIR [Concomitant]
     Indication: ASTHMA
     Dosage: 10 MG
  5. FEXOFENADINE [Concomitant]
     Indication: HYPERSENSITIVITY
     Dosage: 180 MG
  6. ZANTAC [Concomitant]
     Indication: DYSPEPSIA
  7. SIMVASTATIN [Concomitant]
     Indication: BLOOD CHOLESTEROL
     Dosage: 20 MG

REACTIONS (8)
  - OBSESSIVE-COMPULSIVE DISORDER [None]
  - EMOTIONAL DISTRESS [None]
  - COMPULSIVE SHOPPING [None]
  - PATHOLOGICAL GAMBLING [None]
  - DYSPEPSIA [None]
  - HYPERPHAGIA [None]
  - STRESS [None]
  - BINGE EATING [None]
